FAERS Safety Report 5532820-4 (Version None)
Quarter: 2007Q4

REPORT INFORMATION
  Report Type: 
  Country: None (occurrence: None)
  Receive Date: 20071130
  Receipt Date: 20071130
  Transmission Date: 20080405
  Serious: Yes (Other)
  Sender: FDA-Public Use
  Company Number: None

PATIENT
  Age: 27 Year
  Sex: Female
  Weight: 72.5755 kg

DRUGS (2)
  1. CYMBALTA [Suspect]
     Indication: ANXIETY
     Dosage: 30 MG 1 TIME PER DAY PO
     Route: 048
     Dates: start: 20060710, end: 20071128
  2. CYMBALTA [Suspect]
     Indication: PANIC ATTACK
     Dosage: 30 MG 1 TIME PER DAY PO
     Route: 048
     Dates: start: 20060710, end: 20071128

REACTIONS (9)
  - ABNORMAL DREAMS [None]
  - ANOREXIA [None]
  - DIARRHOEA [None]
  - DIZZINESS [None]
  - DRUG WITHDRAWAL SYNDROME [None]
  - FATIGUE [None]
  - MOOD SWINGS [None]
  - NERVOUS SYSTEM DISORDER [None]
  - VISION BLURRED [None]
